FAERS Safety Report 7907412-X (Version None)
Quarter: 2011Q4

REPORT INFORMATION
  Report Type: 
  Country: None (occurrence: None)
  Receive Date: 20111110
  Receipt Date: 20111101
  Transmission Date: 20120403
  Serious: Yes (Death, Hospitalization)
  Sender: FDA-Public Use
  Company Number: US-JNJFOC-20111100590

PATIENT
  Sex: Male

DRUGS (5)
  1. ANTIBIOTIC [Concomitant]
  2. ORAL ANTIDIABETIC [Concomitant]
  3. PREDNISONE TAB [Concomitant]
  4. PRILOSEC [Concomitant]
  5. REMICADE [Suspect]
     Indication: COLITIS ULCERATIVE
     Route: 042
     Dates: start: 20110801

REACTIONS (6)
  - CARDIAC FAILURE [None]
  - ACIDOSIS [None]
  - CARDIOGENIC SHOCK [None]
  - PNEUMONIA [None]
  - HYPERTENSION [None]
  - CARDIAC ARREST [None]
